FAERS Safety Report 14412545 (Version 1)
Quarter: 2018Q1

REPORT INFORMATION
  Report Type: Report from Study
  Country: US (occurrence: US)
  Receive Date: 20180119
  Receipt Date: 20180119
  Transmission Date: 20180509
  Serious: Yes (Hospitalization)
  Sender: FDA-Public Use
  Company Number: US-BAYER-2017-237517

PATIENT
  Age: 63 Year
  Sex: Male

DRUGS (2)
  1. NEXAVAR [Suspect]
     Active Substance: SORAFENIB
     Indication: HEPATOCELLULAR CARCINOMA
     Dosage: DAILY DOSE 600 MG (200 MG IN AM, 400 MG IN PM)
     Route: 048
     Dates: start: 2017
  2. NEXAVAR [Suspect]
     Active Substance: SORAFENIB
     Indication: HEPATOCELLULAR CARCINOMA
     Dosage: 400 MG, BID
     Route: 048
     Dates: start: 20171128, end: 2017

REACTIONS (15)
  - Pruritus [None]
  - Dry skin [None]
  - Fatigue [Not Recovered/Not Resolved]
  - Abdominal pain [Recovering/Resolving]
  - Viral test positive [Recovering/Resolving]
  - Diarrhoea [None]
  - Erythema [None]
  - Renal disorder [Recovering/Resolving]
  - Burning sensation [None]
  - Pneumonia [Recovering/Resolving]
  - Ear discomfort [None]
  - Feeling hot [None]
  - White blood cell count decreased [Recovering/Resolving]
  - Ear pruritus [None]
  - Rash macular [None]
